FAERS Safety Report 25261927 (Version 1)
Quarter: 2025Q2

REPORT INFORMATION
  Report Type: Spontaneous
  Country: US (occurrence: US)
  Receive Date: 20250502
  Receipt Date: 20250502
  Transmission Date: 20250717
  Serious: No
  Sender: ALEXION PHARMACEUTICALS
  Company Number: US-AstraZeneca-CH-00859440A

PATIENT

DRUGS (2)
  1. FASLODEX [Suspect]
     Active Substance: FULVESTRANT
     Route: 065
  2. FASLODEX [Suspect]
     Active Substance: FULVESTRANT

REACTIONS (7)
  - Vomiting [Unknown]
  - Product use issue [Unknown]
  - Anxiety [Unknown]
  - Carbohydrate intolerance [Unknown]
  - Weight decreased [Unknown]
  - Liver disorder [Unknown]
  - Chest discomfort [Unknown]
